FAERS Safety Report 19108101 (Version 2)
Quarter: 2021Q2

REPORT INFORMATION
  Report Type: Other
  Country: TR (occurrence: TR)
  Receive Date: 20210408
  Receipt Date: 20210419
  Transmission Date: 20210717
  Serious: Yes (Other)
  Sender: FDA-Public Use
  Company Number: TR-ROCHE-2800472

PATIENT

DRUGS (1)
  1. RITUXIMAB. [Suspect]
     Active Substance: RITUXIMAB
     Indication: NEUROMYELITIS OPTICA SPECTRUM DISORDER
     Route: 042

REACTIONS (17)
  - Enteritis infectious [Unknown]
  - Basal cell carcinoma [Unknown]
  - Paraesthesia [Unknown]
  - Headache [Unknown]
  - Liver function test increased [Unknown]
  - Urinary tract infection [Unknown]
  - Fatigue [Unknown]
  - Rash [Unknown]
  - Upper respiratory tract infection [Unknown]
  - Anaemia [Unknown]
  - Arthralgia [Unknown]
  - Pharyngeal swelling [Unknown]
  - Dizziness [Unknown]
  - Lower respiratory tract infection [Unknown]
  - Lymphopenia [Unknown]
  - Myalgia [Unknown]
  - Influenza [Unknown]
